FAERS Safety Report 18097697 (Version 2)
Quarter: 2020Q3

REPORT INFORMATION
  Report Type: Spontaneous
  Country: US (occurrence: US)
  Receive Date: 20200731
  Receipt Date: 20200817
  Transmission Date: 20201103
  Serious: Yes (Hospitalization, Other)
  Sender: FDA-Public Use
  Company Number: US-GLAXOSMITHKLINE-US2020AMR146099

PATIENT
  Sex: Female

DRUGS (2)
  1. ZEJULA [Suspect]
     Active Substance: NIRAPARIB
     Indication: GENITAL NEOPLASM MALIGNANT FEMALE
  2. ZEJULA [Suspect]
     Active Substance: NIRAPARIB
     Indication: OVARIAN CANCER
     Dosage: 100 MG
     Dates: start: 20200319

REACTIONS (4)
  - Red blood cell count decreased [Unknown]
  - Therapy interrupted [Unknown]
  - White blood cell count decreased [Unknown]
  - Syncope [Unknown]
